FAERS Safety Report 7407450-X (Version None)
Quarter: 2011Q2

REPORT INFORMATION
  Report Type: 
  Country: None (occurrence: None)
  Receive Date: 20110411
  Receipt Date: 20110406
  Transmission Date: 20111010
  Serious: Yes (Hospitalization)
  Sender: FDA-Public Use
  Company Number: US-BRISTOL-MYERS SQUIBB COMPANY-15658826

PATIENT
  Age: 67 Year
  Sex: Male
  Weight: 97 kg

DRUGS (3)
  1. TAXOL [Suspect]
     Indication: OESOPHAGEAL ADENOCARCINOMA
     Dosage: LAST DOSE ON 07FEB2011
     Route: 042
     Dates: start: 20110110
  2. ERBITUX [Suspect]
     Indication: OESOPHAGEAL ADENOCARCINOMA
     Dosage: LAST DOSE ON 07FEB2011
     Route: 042
     Dates: start: 20110110, end: 20110207
  3. CISPLATIN [Suspect]
     Indication: OESOPHAGEAL ADENOCARCINOMA
     Dosage: LAST DOSE ON 07FEB2011
     Route: 042
     Dates: start: 20110110, end: 20110207

REACTIONS (3)
  - NAUSEA [None]
  - RADIATION OESOPHAGITIS [None]
  - DYSPHAGIA [None]
